FAERS Safety Report 7628044 (Version 3)
Quarter: 2014Q2

REPORT INFORMATION
  Report Type: Spontaneous
  Country: US (occurrence: US)
  Receive Date: 20101013
  Receipt Date: 20140513
  Transmission Date: 20141212
  Serious: No
  Sender: FDA-Public Use
  Company Number: US-ASTRAZENECA-2009SE18314

PATIENT
  Age: 843 Month
  Sex: Female
  Weight: 52.2 kg

DRUGS (11)
  1. SYMBICORT [Suspect]
     Indication: ASTHMA
     Dosage: 360 MCG 4 PUFFS, TWO TIMES A DAY
     Route: 055
     Dates: start: 200909
  2. SYMBICORT [Suspect]
     Indication: ASTHMA
     Dosage: 620 MCG, TOTAL , TWO TIMES A DAY
     Route: 055
     Dates: start: 2009
  3. RHINOCORT AQUA [Suspect]
     Indication: SINUSITIS
     Route: 045
     Dates: start: 20100701
  4. ANXIETY MEDICATION [Concomitant]
  5. THYROID MEDICATION [Concomitant]
  6. MULTI-VITAMIN [Concomitant]
  7. ALPRAZOLAM [Concomitant]
     Indication: ANXIETY
  8. CALCIUM [Concomitant]
  9. HYDROXYCHLOROQUINE [Concomitant]
     Indication: SYSTEMIC LUPUS ERYTHEMATOSUS
  10. LEVOTHYROXINE [Concomitant]
     Indication: THYROID DISORDER
  11. LYRICA [Concomitant]

REACTIONS (14)
  - Dysgeusia [Unknown]
  - Weight increased [Unknown]
  - Bone pain [Unknown]
  - Weight decreased [Unknown]
  - Breast cyst [Unknown]
  - Ageusia [Unknown]
  - Back pain [Unknown]
  - Dizziness [Unknown]
  - Malaise [Unknown]
  - Contusion [Unknown]
  - Dysphonia [Unknown]
  - Swelling face [Unknown]
  - Drug ineffective [Unknown]
  - Sinusitis [Unknown]
